FAERS Safety Report 8178263-9 (Version None)
Quarter: 2012Q1

REPORT INFORMATION
  Report Type: 
  Country: None (occurrence: None)
  Receive Date: 20120301
  Receipt Date: 20120228
  Transmission Date: 20120608
  Serious: Yes (Death)
  Sender: FDA-Public Use
  Company Number: US-PURDUE-USA-2012-0082050

PATIENT
  Age: 61 Year
  Sex: Female

DRUGS (1)
  1. TRAMADOL HCL [Suspect]
     Indication: PRODUCT USED FOR UNKNOWN INDICATION
     Dosage: UNK, SEE TEXT

REACTIONS (3)
  - OVERDOSE [None]
  - SEPSIS [None]
  - PNEUMONIA [None]
